FAERS Safety Report 6541696-8 (Version None)
Quarter: 2010Q1

REPORT INFORMATION
  Report Type: 
  Country: None (occurrence: None)
  Receive Date: 20100119
  Receipt Date: 20100107
  Transmission Date: 20100710
  Serious: Yes (Hospitalization)
  Sender: FDA-Public Use
  Company Number: JP-AMGEN-US370429

PATIENT
  Sex: Female

DRUGS (4)
  1. ENBREL [Suspect]
     Indication: RHEUMATOID ARTHRITIS
     Dosage: SOLUTION FOR INJECTION; 25 MG 1 X PER 1 WEEK
     Route: 058
     Dates: end: 20091006
  2. ENBREL [Suspect]
     Dosage: LYOPHILIZED; 25 MG 1 X PER 1 WEEK
     Route: 058
     Dates: start: 20060828
  3. PREDNISOLONE [Suspect]
     Indication: RHEUMATOID ARTHRITIS
     Dosage: TABLET DOSE FORM; DOSE AND FREQUENCY NOT SPECIFIED
     Route: 048
     Dates: start: 20080626
  4. METHOTREXATE [Concomitant]
     Indication: RHEUMATOID ARTHRITIS
     Route: 048
     Dates: start: 20080626, end: 20091006

REACTIONS (3)
  - CONDITION AGGRAVATED [None]
  - PNEUMOCYSTIS JIROVECI PNEUMONIA [None]
  - RHEUMATOID ARTHRITIS [None]
